FAERS Safety Report 25741996 (Version 1)
Quarter: 2025Q3

REPORT INFORMATION
  Report Type: Spontaneous
  Country: US (occurrence: None)
  Receive Date: 20250829
  Receipt Date: 20250829
  Transmission Date: 20251021
  Serious: No
  Sender: FDA-CTU
  Company Number: None

PATIENT
  Age: 63 Year
  Sex: Female
  Weight: 95.25 kg

DRUGS (9)
  1. JARDIANCE [Suspect]
     Active Substance: EMPAGLIFLOZIN
     Indication: Diabetes mellitus
     Dosage: FREQUENCY : DAILY;?
     Route: 048
     Dates: start: 202309, end: 202502
  2. Buspirone Hydro [Concomitant]
  3. Buspirone HCL Xl [Concomitant]
  4. ATORVASTATIN [Concomitant]
     Active Substance: ATORVASTATIN
  5. CETIRIZINE HYDRO [Concomitant]
  6. GLIPIZIDE ER [Concomitant]
     Active Substance: GLIPIZIDE
  7. LISINOPRIL [Concomitant]
     Active Substance: LISINOPRIL
  8. HERBALS\TURMERIC [Concomitant]
     Active Substance: HERBALS\TURMERIC
  9. MELATONIN [Concomitant]
     Active Substance: MELATONIN

REACTIONS (3)
  - Vaginal neoplasm [None]
  - Uterine neoplasm [None]
  - Fungal infection [None]

NARRATIVE: CASE EVENT DATE: 20250222
